FAERS Safety Report 20763148 (Version 4)
Quarter: 2022Q3

REPORT INFORMATION
  Report Type: Spontaneous
  Country: US (occurrence: US)
  Receive Date: 20220428
  Receipt Date: 20220804
  Transmission Date: 20221027
  Serious: No
  Sender: FDA-Public Use
  Company Number: US-PFIZER INC-202200569156

PATIENT
  Age: 46 Year
  Sex: Female

DRUGS (8)
  1. IBRANCE [Suspect]
     Active Substance: PALBOCICLIB
     Indication: Breast cancer female
     Dosage: ONCE DAILY, DAYS 1-21 EVERY 28 DAYS (3 WEEKS ON / 1 WEEK OFF)
     Route: 048
     Dates: start: 20220211
  2. IBRANCE [Suspect]
     Active Substance: PALBOCICLIB
     Indication: Neoplasm malignant
  3. ATENOLOL [Concomitant]
     Active Substance: ATENOLOL
     Dosage: UNK
  4. BIOTIN [Concomitant]
     Active Substance: BIOTIN
     Dosage: UNK (5000)
  5. BUPROPION HYDROCHLORIDE [Concomitant]
     Active Substance: BUPROPION HYDROCHLORIDE
     Dosage: UNK
  6. FASLODEX [Concomitant]
     Active Substance: FULVESTRANT
     Dosage: UNK (250/5ML)
  7. CHOLECALCIFEROL [Concomitant]
     Active Substance: CHOLECALCIFEROL
     Dosage: UNK
  8. XGEVA [Concomitant]
     Active Substance: DENOSUMAB
     Dosage: UNK

REACTIONS (14)
  - Dry mouth [Unknown]
  - Oral discomfort [Unknown]
  - Nasal dryness [Unknown]
  - Dry skin [Unknown]
  - Epistaxis [Unknown]
  - Fatigue [Unknown]
  - Alopecia [Unknown]
  - Red blood cell count decreased [Unknown]
  - Nerve injury [Unknown]
  - Hypoaesthesia [Unknown]
  - Paraesthesia [Unknown]
  - Pain [Unknown]
  - Burning sensation [Unknown]
  - Off label use [Unknown]

NARRATIVE: CASE EVENT DATE: 20220211
